FAERS Safety Report 4974970-7 (Version None)
Quarter: 2006Q2

REPORT INFORMATION
  Report Type: 
  Country: None (occurrence: None)
  Receive Date: 20060414
  Receipt Date: 20060414
  Transmission Date: 20061013
  Serious: Yes (Other)
  Sender: FDA-Public Use
  Company Number: None

PATIENT

DRUGS (1)
  1. VALTREX [Suspect]
     Indication: ILL-DEFINED DISORDER
     Dosage: 1 TABLET ONCE DAILY PO
     Route: 048
     Dates: start: 20050831, end: 20050922

REACTIONS (3)
  - CONDITION AGGRAVATED [None]
  - DRUG EXPOSURE DURING PREGNANCY [None]
  - HERPES SIMPLEX [None]
